FAERS Safety Report 19532694 (Version 2)
Quarter: 2021Q3

REPORT INFORMATION
  Report Type: Spontaneous
  Country: PH (occurrence: PH)
  Receive Date: 20210714
  Receipt Date: 20210803
  Transmission Date: 20211014
  Serious: Yes (Death, Other)
  Sender: FDA-Public Use
  Company Number: PH-CYCLE PHARMACEUTICALS LTD-2021-CYC-000022

PATIENT

DRUGS (3)
  1. NITYR [Suspect]
     Active Substance: NITISINONE
     Dosage: 2 MG, TID
     Route: 048
     Dates: start: 202007
  2. NITYR [Suspect]
     Active Substance: NITISINONE
     Indication: TYROSINAEMIA
     Dosage: 5 MG IN 5 ML WATER
     Route: 048
     Dates: start: 20191022
  3. NITYR [Suspect]
     Active Substance: NITISINONE
     Dosage: 5 MG, QD
     Route: 048
     Dates: start: 202011, end: 20210604

REACTIONS (3)
  - Seizure [Unknown]
  - Death [Fatal]
  - Product distribution issue [Fatal]

NARRATIVE: CASE EVENT DATE: 20210604
